FAERS Safety Report 20799051 (Version 1)
Quarter: 2022Q2

REPORT INFORMATION
  Report Type: Spontaneous
  Country: CN (occurrence: CN)
  Receive Date: 20220507
  Receipt Date: 20220507
  Transmission Date: 20220720
  Serious: Yes (Hospitalization, Other)
  Sender: FDA-Public Use
  Company Number: CN-AMGEN-CHNSP2022074268

PATIENT
  Age: 70 Year
  Sex: Male
  Weight: 55.5 kg

DRUGS (4)
  1. XGEVA [Suspect]
     Active Substance: DENOSUMAB
     Indication: Rectal cancer
     Dosage: 120 MILLIGRAM
     Route: 042
     Dates: start: 20220314, end: 20220314
  2. MVASI [Suspect]
     Active Substance: BEVACIZUMAB-AWWB
     Indication: Rectal cancer
     Dosage: 245 MILLIGRAM
     Route: 041
     Dates: start: 202207, end: 20220316
  3. TIPIRACIL HYDROCHLORIDE\TRIFLURIDINE [Suspect]
     Active Substance: TIPIRACIL HYDROCHLORIDE\TRIFLURIDINE
     Indication: Rectal cancer
     Dosage: 50 MILLIGRAM, BID
     Route: 048
     Dates: start: 20220302, end: 20220306
  4. TIPIRACIL HYDROCHLORIDE\TRIFLURIDINE [Suspect]
     Active Substance: TIPIRACIL HYDROCHLORIDE\TRIFLURIDINE
     Dosage: 50 MILLIGRAM, BID
     Route: 048
     Dates: start: 20220316, end: 20220320

REACTIONS (9)
  - Rectal cancer metastatic [Not Recovered/Not Resolved]
  - Pulmonary embolism [Unknown]
  - Arteriosclerosis coronary artery [Unknown]
  - Drug intolerance [Unknown]
  - Bone disorder [Unknown]
  - Cough [Unknown]
  - Chest discomfort [Unknown]
  - White blood cell count increased [Unknown]
  - C-reactive protein increased [Unknown]

NARRATIVE: CASE EVENT DATE: 20220324
